FAERS Safety Report 10371377 (Version 2)
Quarter: 2014Q3

REPORT INFORMATION
  Report Type: Spontaneous
  Country: US (occurrence: US)
  Receive Date: 20140808
  Receipt Date: 20140925
  Transmission Date: 20150326
  Serious: Yes (Other)
  Sender: FDA-Public Use
  Company Number: US-AMGEN-USASP2014059140

PATIENT
  Age: 66 Year
  Sex: Female

DRUGS (5)
  1. ADVIL (MEFENAMIC ACID) [Concomitant]
     Active Substance: MEFENAMIC ACID
     Indication: SINUS DISORDER
  2. PROLIA [Suspect]
     Active Substance: DENOSUMAB
     Indication: OSTEOPOROSIS
     Dosage: UNK
     Route: 065
  3. VITAMIN D                          /00107901/ [Concomitant]
     Active Substance: ERGOCALCIFEROL
     Dosage: UNK
  4. VITAMIN D3 [Concomitant]
     Active Substance: CHOLECALCIFEROL
     Dosage: 800 IU, UNK
  5. MULTIVITAMIN                       /00097801/ [Concomitant]
     Active Substance: VITAMINS
     Dosage: UNK

REACTIONS (13)
  - Eye disorder [Unknown]
  - Clavicle fracture [Not Recovered/Not Resolved]
  - Fatigue [Not Recovered/Not Resolved]
  - Lacrimation increased [Unknown]
  - Hypotension [Unknown]
  - Feeling abnormal [Unknown]
  - Hypertension [Unknown]
  - Arthropathy [Recovering/Resolving]
  - Upper limb fracture [Not Recovered/Not Resolved]
  - Lethargy [Not Recovered/Not Resolved]
  - Spinal disorder [Not Recovered/Not Resolved]
  - Insomnia [Unknown]
  - Eye irritation [Unknown]

NARRATIVE: CASE EVENT DATE: 201405
